FAERS Safety Report 9528631 (Version 1)
Quarter: 2013Q3

REPORT INFORMATION
  Report Type: Spontaneous
  Country: US (occurrence: US)
  Receive Date: 20130917
  Receipt Date: 20130917
  Transmission Date: 20140515
  Serious: No
  Sender: FDA-Public Use
  Company Number: US-BANPHARM-20120133

PATIENT
  Age: 29 Year
  Sex: Male
  Weight: 109.09 kg

DRUGS (4)
  1. ZYRTEC LIQUID GELS 10 MG [Suspect]
     Indication: SEASONAL ALLERGY
     Dosage: 1 DF, QD,
     Route: 048
  2. DAILY MULTIPLE VITAMIN [Concomitant]
     Dosage: 1 DAILY
     Route: 048
     Dates: start: 2004
  3. ZYRTEC 10MG TABLETS [Concomitant]
     Dosage: 1 DAILY
  4. SUDAFED PSE MS TABLETS 30MG [Concomitant]
     Dosage: 2 TABS AS NEEDED
     Route: 048

REACTIONS (2)
  - Therapeutic response unexpected with drug substitution [Unknown]
  - Drug ineffective [Unknown]
